FAERS Safety Report 16290089 (Version 2)
Quarter: 2019Q2

REPORT INFORMATION
  Report Type: Spontaneous
  Country: US (occurrence: US)
  Receive Date: 20190509
  Receipt Date: 20190524
  Transmission Date: 20190711
  Serious: Yes (Hospitalization, Other)
  Sender: FDA-Public Use
  Company Number: US-JNJFOC-20190446361

PATIENT
  Sex: Female
  Weight: 51.71 kg

DRUGS (3)
  1. SIMPONI [Suspect]
     Active Substance: GOLIMUMAB
     Indication: ANKYLOSING SPONDYLITIS
     Route: 058
     Dates: start: 201903
  2. COSENTYX [Suspect]
     Active Substance: SECUKINUMAB
     Indication: ANKYLOSING SPONDYLITIS
     Route: 065
  3. FENTANYL. [Suspect]
     Active Substance: FENTANYL
     Indication: ANKYLOSING SPONDYLITIS
     Route: 062

REACTIONS (6)
  - Drug ineffective [Not Recovered/Not Resolved]
  - Adverse drug reaction [Unknown]
  - Underdose [Unknown]
  - Expired product administered [Unknown]
  - Cushing^s syndrome [Not Recovered/Not Resolved]
  - Product dose omission [Unknown]

NARRATIVE: CASE EVENT DATE: 2019
